FAERS Safety Report 10352477 (Version 1)
Quarter: 2014Q3

REPORT INFORMATION
  Report Type: Spontaneous
  Country: US (occurrence: US)
  Receive Date: 20140730
  Receipt Date: 20140730
  Transmission Date: 20150326
  Serious: No
  Sender: FDA-Public Use
  Company Number: US-ABBVIE-13P-163-1165013-00

PATIENT
  Age: 50 Year
  Sex: Female
  Weight: 3.5 kg

DRUGS (3)
  1. SYNTHROID [Suspect]
     Active Substance: LEVOTHYROXINE SODIUM
     Indication: PRODUCT USED FOR UNKNOWN INDICATION
     Route: 048
     Dates: start: 201310, end: 201310
  2. ETODOLAC. [Concomitant]
     Active Substance: ETODOLAC
     Indication: SJOGREN^S SYNDROME
     Route: 048
  3. INSULIN [Concomitant]
     Active Substance: INSULIN NOS
     Indication: DIABETES MELLITUS
     Route: 058

REACTIONS (5)
  - Joint stiffness [Recovered/Resolved]
  - Abdominal distension [Recovered/Resolved]
  - Rash [Recovered/Resolved]
  - Adverse reaction [Unknown]
  - Fatigue [Recovered/Resolved]

NARRATIVE: CASE EVENT DATE: 201310
